FAERS Safety Report 18584116 (Version 2)
Quarter: 2020Q4

REPORT INFORMATION
  Report Type: Report from Study
  Country: US (occurrence: US)
  Receive Date: 20201207
  Receipt Date: 20201217
  Transmission Date: 20210114
  Serious: No
  Sender: FDA-Public Use
  Company Number: US-BIOVITRUM-2020US7143

PATIENT
  Sex: Female

DRUGS (4)
  1. SYNAGIS [Suspect]
     Active Substance: PALIVIZUMAB
     Indication: ANTIVIRAL PROPHYLAXIS
     Route: 030
     Dates: start: 20201015
  2. NYSTATIN. [Concomitant]
     Active Substance: NYSTATIN
  3. IRON [Concomitant]
     Active Substance: IRON
  4. MULTIVITAMINS WITH IRON [Concomitant]
     Active Substance: IRON\VITAMINS

REACTIONS (2)
  - Rash [Recovered/Resolved]
  - Injection site rash [Recovered/Resolved]
